FAERS Safety Report 17338005 (Version 1)
Quarter: 2020Q1

REPORT INFORMATION
  Report Type: Report from Study
  Country: ES (occurrence: ES)
  Receive Date: 20200129
  Receipt Date: 20200129
  Transmission Date: 20200409
  Serious: Yes (Death, Hospitalization)
  Sender: FDA-Public Use
  Company Number: ES-TEVA-2020-ES-1174877

PATIENT
  Age: 63 Year
  Sex: Female

DRUGS (6)
  1. ADIRO 100 MG COMPRIMIDOS GASTRORRESISTENTES EFG, 30 COMPRIMIDOS (POLIP [Interacting]
     Active Substance: ASPIRIN
     Indication: PROPHYLAXIS
     Dosage: 100 MG; 30 TABLETS (POLYPROPYLENE - ALUMINUM)
     Route: 048
     Dates: start: 20160415, end: 20180426
  2. ATORVASTATINA (7400A) [Suspect]
     Active Substance: ATORVASTATIN
     Indication: DYSLIPIDAEMIA
     Dosage: 40 MG
     Route: 048
     Dates: start: 20081204, end: 20180426
  3. DOXAZOSINA (2387A) [Concomitant]
     Active Substance: DOXAZOSIN MESYLATE
     Indication: HYPERTENSION
     Dosage: 4 MG
     Route: 048
     Dates: start: 20160415, end: 20180426
  4. BIALFOLI 5 MG COMPRIMIDOS, 60 COMPRIMIDOS [Concomitant]
     Dosage: 5 MG; 60 TABLETS
     Route: 048
     Dates: start: 20160313
  5. BISOPROLOL (2328A) [Concomitant]
     Active Substance: BISOPROLOL
     Indication: CARDIAC FAILURE
     Dosage: 2.5 MG
     Route: 048
     Dates: start: 20160415, end: 20180426
  6. ALDOCUMAR 1 MG COMPRIMIDOS, 40 COMPRIMIDOS [Interacting]
     Active Substance: WARFARIN SODIUM
     Indication: ATRIAL FIBRILLATION
     Dosage: 40 TABLETS
     Route: 048
     Dates: start: 20121217, end: 20180426

REACTIONS (2)
  - Retroperitoneal haematoma [Fatal]
  - Drug interaction [Unknown]

NARRATIVE: CASE EVENT DATE: 20180426
